FAERS Safety Report 7540049-3 (Version None)
Quarter: 2011Q2

REPORT INFORMATION
  Report Type: 
  Country: None (occurrence: None)
  Receive Date: 20110603
  Receipt Date: 20110520
  Transmission Date: 20111010
  Serious: Yes (Other)
  Sender: FDA-Public Use
  Company Number: NGX_00416_2011

PATIENT
  Sex: Female

DRUGS (1)
  1. QUTENZA [Suspect]
     Indication: PRODUCT USED FOR UNKNOWN INDICATION
     Dosage: (DF TOPICAL)
     Route: 061
     Dates: start: 20110512, end: 20110512

REACTIONS (5)
  - APPLICATION SITE IRRITATION [None]
  - APPLICATION SITE EXFOLIATION [None]
  - BLOOD PRESSURE INCREASED [None]
  - BLISTER [None]
  - ERYTHEMA [None]
